FAERS Safety Report 10070778 (Version 1)
Quarter: 2014Q2

REPORT INFORMATION
  Report Type: Spontaneous
  Country: FR (occurrence: FR)
  Receive Date: 20140410
  Receipt Date: 20140410
  Transmission Date: 20141212
  Serious: Yes (Hospitalization)
  Sender: FDA-Public Use
  Company Number: FR-PFIZER INC-2014098915

PATIENT
  Age: 6 Year
  Sex: Female

DRUGS (7)
  1. SOLU-MEDROL [Suspect]
     Indication: NON-HODGKIN^S LYMPHOMA
     Dosage: 16 MG ON J1 AND J2
     Route: 042
     Dates: start: 20131227
  2. SOLU-MEDROL [Suspect]
     Dosage: 10 MG, DAILY
     Route: 042
     Dates: start: 20140124
  3. SOLU-MEDROL [Suspect]
     Dosage: 8 MG, DAILY
     Route: 042
     Dates: start: 20140128, end: 20140207
  4. METHOTREXATE [Suspect]
     Indication: NON-HODGKIN^S LYMPHOMA
     Dosage: 12 MG DAILY (CYCLIC)
     Route: 037
     Dates: start: 20131228, end: 20140107
  5. KIDROLASE [Suspect]
     Indication: NON-HODGKIN^S LYMPHOMA
     Dosage: 8200 IU DAILY (CYCLIC)
     Route: 042
     Dates: start: 20140107, end: 20140125
  6. VINCRISTINE [Concomitant]
     Indication: NON-HODGKIN^S LYMPHOMA
     Dosage: 1.2 MG, DAILY (CYCLIC)
     Dates: start: 20140103, end: 20140124
  7. DAUNORUBICIN [Concomitant]
     Indication: NON-HODGKIN^S LYMPHOMA
     Dosage: 30 MG/M2 DAILY (CYCLIC)
     Dates: start: 20140103, end: 20140124

REACTIONS (1)
  - Posterior reversible encephalopathy syndrome [Recovering/Resolving]
